FAERS Safety Report 25502015 (Version 1)
Quarter: 2025Q3

REPORT INFORMATION
  Report Type: Report from Study
  Country: PE (occurrence: PE)
  Receive Date: 20250702
  Receipt Date: 20250702
  Transmission Date: 20251020
  Serious: Yes (Other)
  Sender: JOHNSON AND JOHNSON
  Company Number: PE-JNJFOC-20250633587

PATIENT
  Age: 42 Year
  Sex: Female

DRUGS (1)
  1. SIMPONI [Suspect]
     Active Substance: GOLIMUMAB
     Indication: Rheumatoid arthritis
     Route: 058

REACTIONS (3)
  - Pulmonary fibrosis [Unknown]
  - Bronchitis [Unknown]
  - Multiple allergies [Unknown]

NARRATIVE: CASE EVENT DATE: 20250601
